FAERS Safety Report 4390358-4 (Version None)
Quarter: 2004Q2

REPORT INFORMATION
  Report Type: 
  Country: None (occurrence: None)
  Receive Date: 20040630
  Receipt Date: 20040622
  Transmission Date: 20050107
  Serious: No
  Sender: FDA-Public Use
  Company Number: 207163

PATIENT
  Age: 69 Year
  Sex: Female
  Weight: 68 kg

DRUGS (2)
  1. RITUXAN [Suspect]
     Indication: NON-HODGKIN'S LYMPHOMA
     Dosage: 750 MG, 1/WEEK, INTRAVENOUS
     Route: 042
     Dates: start: 20030703
  2. PREDNISONE TAB [Concomitant]

REACTIONS (1)
  - PSORIASIS [None]
